FAERS Safety Report 23948575 (Version 1)
Quarter: 2024Q2

REPORT INFORMATION
  Report Type: Spontaneous
  Country: US (occurrence: US)
  Receive Date: 20240607
  Receipt Date: 20240607
  Transmission Date: 20240716
  Serious: No
  Sender: FDA-Public Use
  Company Number: US-BAUSCH-BL-2024-008426

PATIENT
  Age: 59 Year
  Sex: Male

DRUGS (2)
  1. RETIN-A [Suspect]
     Active Substance: TRETINOIN
     Indication: Skin wrinkling
     Route: 061
     Dates: start: 2009
  2. RETIN-A [Suspect]
     Active Substance: TRETINOIN
     Indication: Product use in unapproved indication

REACTIONS (2)
  - Acne [Unknown]
  - Product use in unapproved indication [Unknown]
